FAERS Safety Report 26107749 (Version 1)
Quarter: 2025Q4

REPORT INFORMATION
  Report Type: Spontaneous
  Country: US (occurrence: None)
  Receive Date: 20251127
  Receipt Date: 20251127
  Transmission Date: 20260117
  Serious: Yes (Hospitalization)
  Sender: FDA-CTU
  Company Number: None

PATIENT
  Age: 75 Year
  Sex: Male
  Weight: 88 kg

DRUGS (3)
  1. CARBOPLATIN [Suspect]
     Active Substance: CARBOPLATIN
     Dates: end: 20251030
  2. CISPLATIN [Suspect]
     Active Substance: CISPLATIN
     Dates: end: 20250918
  3. ALIMTA [Suspect]
     Active Substance: PEMETREXED DISODIUM
     Dates: end: 20251030

REACTIONS (3)
  - Cytopenia [None]
  - Rectal haemorrhage [None]
  - Fall [None]

NARRATIVE: CASE EVENT DATE: 20251117
